FAERS Safety Report 4514981-9 (Version None)
Quarter: 2004Q4

REPORT INFORMATION
  Report Type: 
  Country: None (occurrence: None)
  Receive Date: 20041129
  Receipt Date: 20041129
  Transmission Date: 20050328
  Serious: Yes (Life-Threatening)
  Sender: FDA-Public Use
  Company Number: None

PATIENT
  Age: 56 Year
  Sex: Female
  Weight: 45.3597 kg

DRUGS (23)
  1. XIGRIS [Suspect]
     Indication: SEPSIS
     Dosage: 20 MG/250 ML D5W IVPB Q 8 HRS (24 MCG/KG/1HR)
     Route: 042
     Dates: start: 20041113
  2. XIGRIS [Suspect]
     Indication: SEPSIS
     Dosage: 20 MG/250 ML D5W IVPB Q 8 HRS (24 MCG/KG/1HR)
     Route: 042
     Dates: start: 20041117
  3. COMBIVENT AND ALBUTEROL NEBULIZATIONS [Concomitant]
  4. ACCUZYME OINT [Concomitant]
  5. CANCIDAS [Concomitant]
  6. LEVAQUIN [Concomitant]
  7. VANCOMYCIN [Concomitant]
  8. ZOSYN [Concomitant]
  9. SOLU-CORTEF [Concomitant]
  10. LORAZEPAM [Concomitant]
  11. FENTANYL [Concomitant]
  12. HEPARIN [Concomitant]
  13. REGULAR ILETIN II [Concomitant]
  14. REGULAR ILETIN II [Concomitant]
  15. 0.9% NS [Concomitant]
  16. TOTAL PARENTERAL NUTRICTION [Concomitant]
  17. ACETAMINOPHEN [Concomitant]
  18. PERIDEX MOUTHWASH [Concomitant]
  19. BENADRYL [Concomitant]
  20. HALDOL [Concomitant]
  21. DILAUDID [Concomitant]
  22. LORAZEPAM [Concomitant]
  23. ALOE VESTA ANTIFUNGAL OINT [Concomitant]

REACTIONS (5)
  - ATRIAL FIBRILLATION [None]
  - HAEMATOCRIT DECREASED [None]
  - HAEMODYNAMIC INSTABILITY [None]
  - HAEMOGLOBIN DECREASED [None]
  - LOWER GASTROINTESTINAL HAEMORRHAGE [None]
